FAERS Safety Report 6731732-8 (Version None)
Quarter: 2010Q2

REPORT INFORMATION
  Report Type: 
  Country: None (occurrence: None)
  Receive Date: 20100514
  Receipt Date: 20100430
  Transmission Date: 20101027
  Serious: Yes (Other)
  Sender: FDA-Public Use
  Company Number: 011289

PATIENT
  Sex: Female

DRUGS (1)
  1. CIMZIA [Suspect]
     Indication: CROHN'S DISEASE
     Dosage: ON HOLD TO UPCOMING SURGERY SUBCUTANEOUS
     Route: 058
     Dates: start: 20081019

REACTIONS (2)
  - ABDOMINAL PAIN [None]
  - ADRENAL MASS [None]
